FAERS Safety Report 10074721 (Version 1)
Quarter: 2014Q2

REPORT INFORMATION
  Report Type: Spontaneous
  Country: CL (occurrence: CL)
  Receive Date: 20140414
  Receipt Date: 20140414
  Transmission Date: 20141212
  Serious: Yes (Other)
  Sender: FDA-Public Use
  Company Number: CL-PFIZER INC-2014099066

PATIENT
  Age: 72 Year
  Sex: Male

DRUGS (3)
  1. XALATAN [Suspect]
     Indication: GLAUCOMA
     Dosage: 1 DROP, 1X/DAY
     Route: 047
     Dates: start: 2011
  2. DIPYRIDAMOLE [Concomitant]
  3. AZOPT [Concomitant]

REACTIONS (2)
  - Cataract [Unknown]
  - Eye allergy [Not Recovered/Not Resolved]
